FAERS Safety Report 9711238 (Version 1)
Quarter: 2013Q4

REPORT INFORMATION
  Report Type: Spontaneous
  Country: US (occurrence: US)
  Receive Date: 20131126
  Receipt Date: 20131126
  Transmission Date: 20140711
  Serious: Yes (Hospitalization)
  Sender: FDA-Public Use
  Company Number: US-ROXANE LABORATORIES, INC.-2013-RO-01867RO

PATIENT
  Age: 14 Year
  Sex: Male

DRUGS (3)
  1. METHADONE [Suspect]
  2. PARACETAMOL [Suspect]
  3. CAFFEINE [Suspect]

REACTIONS (4)
  - Leukoencephalopathy [Unknown]
  - Unresponsive to stimuli [Unknown]
  - Dystonia [Not Recovered/Not Resolved]
  - Paresis [Not Recovered/Not Resolved]
